FAERS Safety Report 7315684-8 (Version None)
Quarter: 2011Q1

REPORT INFORMATION
  Report Type: 
  Country: None (occurrence: None)
  Receive Date: 20110119
  Receipt Date: 20100521
  Transmission Date: 20110831
  Serious: Yes (Other)
  Sender: FDA-Public Use
  Company Number: A-US2010-36827

PATIENT
  Age: 83 Year
  Sex: Male

DRUGS (12)
  1. LIPITOR [Concomitant]
  2. LASIX [Concomitant]
  3. POTASSIUM CHLORIDE [Concomitant]
  4. PROZAC [Concomitant]
  5. WARFARIN SODIUM [Concomitant]
  6. LUTEIN (XANTOFYL) [Concomitant]
  7. TRACLEER [Suspect]
     Indication: PULMONARY ARTERIAL HYPERTENSION
     Dosage: 62.5 MG, BID, ORAL
     Route: 048
     Dates: start: 20100505, end: 20100610
  8. CARDURA [Concomitant]
  9. OXYGEN (OXYGEN) [Concomitant]
  10. REVATIO [Concomitant]
  11. PREDNISOLONE ACETATE [Concomitant]
  12. METOPROLOL TARTRATE [Concomitant]

REACTIONS (3)
  - JOINT SWELLING [None]
  - DYSPNOEA [None]
  - FLUID RETENTION [None]
